FAERS Safety Report 7546768-7 (Version None)
Quarter: 2011Q2

REPORT INFORMATION
  Report Type: 
  Country: None (occurrence: None)
  Receive Date: 20110614
  Receipt Date: 20110607
  Transmission Date: 20111010
  Serious: Yes (Other)
  Sender: FDA-Public Use
  Company Number: US-ROCHE-735751

PATIENT
  Sex: Female
  Weight: 63.5 kg

DRUGS (1)
  1. ACCUTANE [Suspect]
     Indication: ACNE
     Route: 065
     Dates: start: 19860901, end: 19870901

REACTIONS (12)
  - DEPRESSION [None]
  - IRRITABLE BOWEL SYNDROME [None]
  - SYSTEMIC LUPUS ERYTHEMATOSUS [None]
  - RENAL DISORDER [None]
  - INTESTINAL HAEMORRHAGE [None]
  - COLITIS ULCERATIVE [None]
  - DIVERTICULUM [None]
  - PYODERMA [None]
  - ARTHRITIS [None]
  - EMOTIONAL DISTRESS [None]
  - GASTROINTESTINAL INJURY [None]
  - INFLAMMATORY BOWEL DISEASE [None]
